FAERS Safety Report 7476703-1 (Version None)
Quarter: 2011Q2

REPORT INFORMATION
  Report Type: 
  Country: None (occurrence: None)
  Receive Date: 20110510
  Receipt Date: 20110510
  Transmission Date: 20111010
  Serious: Yes (Other)
  Sender: FDA-Public Use
  Company Number: None

PATIENT
  Age: 16 Year
  Sex: Female
  Weight: 59.78 kg

DRUGS (5)
  1. WELLBUTRIN SR [Suspect]
     Dosage: 150 MG DAILY IN PM BY MOUTH
     Route: 048
  2. WELLBUTRIN XL [Suspect]
     Indication: MAJOR DEPRESSION
     Dosage: 300 MG DAILY IN AM BY MOUTH
     Route: 048
     Dates: start: 20101119, end: 20101127
  3. QUETIAPINE(QUET) [Concomitant]
  4. CITALOPRAM(CIT) [Concomitant]
  5. BUPROPION SR(BUPSR) [Concomitant]

REACTIONS (8)
  - TREMOR [None]
  - FALL [None]
  - HEAD INJURY [None]
  - DYSPNOEA [None]
  - CYANOSIS [None]
  - GRAND MAL CONVULSION [None]
  - DYSARTHRIA [None]
  - UNRESPONSIVE TO STIMULI [None]
